FAERS Safety Report 11297811 (Version 1)
Quarter: 2015Q3

REPORT INFORMATION
  Report Type: Spontaneous
  Country: US (occurrence: US)
  Receive Date: 20150722
  Receipt Date: 20150722
  Transmission Date: 20151125
  Serious: No
  Sender: FDA-Public Use
  Company Number: US-ELI_LILLY_AND_COMPANY-US200912001633

PATIENT
  Sex: Female

DRUGS (2)
  1. HUMATROPE [Suspect]
     Active Substance: SOMATROPIN
     Indication: HYPOTHALAMO-PITUITARY DISORDER
     Dosage: 0.02 MG, AS NEEDED
     Dates: start: 2006
  2. THYROID THERAPY [Concomitant]
     Active Substance: UNSPECIFIED INGREDIENT
     Dosage: UNK, UNKNOWN

REACTIONS (5)
  - Skin discolouration [Not Recovered/Not Resolved]
  - Melanocytic naevus [Unknown]
  - Alopecia [Unknown]
  - Skin discolouration [Unknown]
  - Intentional device misuse [Not Recovered/Not Resolved]

NARRATIVE: CASE EVENT DATE: 2007
